FAERS Safety Report 14274534 (Version 1)
Quarter: 2017Q4

REPORT INFORMATION
  Report Type: Spontaneous
  Country: US (occurrence: US)
  Receive Date: 20171212
  Receipt Date: 20171212
  Transmission Date: 20180321
  Serious: No
  Sender: FDA-Public Use
  Company Number: None

PATIENT
  Sex: Female
  Weight: 19.35 kg

DRUGS (3)
  1. SMARTY PANTS MULTIVITAMIN [Concomitant]
  2. MIRALAX [Suspect]
     Active Substance: POLYETHYLENE GLYCOL 3350
     Indication: CONSTIPATION
     Dosage: ?          QUANTITY:1 CAPFUL;?
     Route: 048
     Dates: start: 20170719, end: 20171204
  3. TYLENOL [Concomitant]
     Active Substance: ACETAMINOPHEN

REACTIONS (3)
  - Aggression [None]
  - Attention deficit/hyperactivity disorder [None]
  - Memory impairment [None]

NARRATIVE: CASE EVENT DATE: 20170801
